FAERS Safety Report 9813118 (Version 1)
Quarter: 2014Q1

REPORT INFORMATION
  Report Type: Spontaneous
  Country: US (occurrence: None)
  Receive Date: 20140110
  Receipt Date: 20140110
  Transmission Date: 20141002
  Serious: Yes (Life-Threatening, Hospitalization)
  Sender: FDA-Public Use
  Company Number: None

PATIENT
  Age: 34 Year
  Sex: Female
  Weight: 86.64 kg

DRUGS (1)
  1. MIRENA [Suspect]
     Dates: start: 20110729, end: 20120827

REACTIONS (5)
  - Pregnancy [None]
  - Fallopian tube perforation [None]
  - Ectopic pregnancy [None]
  - Haemorrhage [None]
  - Maternal exposure before pregnancy [None]
